FAERS Safety Report 8016028-9 (Version None)
Quarter: 2011Q4

REPORT INFORMATION
  Report Type: 
  Country: None (occurrence: None)
  Receive Date: 20111230
  Receipt Date: 20111222
  Transmission Date: 20120403
  Serious: Yes (Other)
  Sender: FDA-Public Use
  Company Number: US-PFIZER INC-2011311996

PATIENT
  Age: 2 Year
  Sex: Male

DRUGS (1)
  1. DIMETAPP DM COLD AND COUGH [Suspect]
     Dosage: UNK

REACTIONS (4)
  - HEART RATE INCREASED [None]
  - ACCIDENTAL OVERDOSE [None]
  - MYDRIASIS [None]
  - ACCIDENTAL DRUG INTAKE BY CHILD [None]
